FAERS Safety Report 21054673 (Version 2)
Quarter: 2022Q3

REPORT INFORMATION
  Report Type: Spontaneous
  Country: BR (occurrence: None)
  Receive Date: 20220707
  Receipt Date: 20220830
  Transmission Date: 20221026
  Serious: Yes (Other)
  Sender: FDA-Public Use
  Company Number: BR-ROCHE-3128558

PATIENT
  Age: 46 Year
  Sex: Male
  Weight: 82.5 kg

DRUGS (3)
  1. EMICIZUMAB [Suspect]
     Active Substance: EMICIZUMAB
     Indication: Factor VIII deficiency
     Route: 065
     Dates: start: 202111
  2. EMICIZUMAB [Suspect]
     Active Substance: EMICIZUMAB
     Dosage: 120 MG PER WEEK
     Route: 065
     Dates: start: 20211214
  3. INSULIN NOS [Concomitant]
     Active Substance: INSULIN NOS
     Indication: Diabetes mellitus

REACTIONS (5)
  - Arteriosclerosis [Recovering/Resolving]
  - Peripheral ischaemia [Recovering/Resolving]
  - Skin discolouration [Recovering/Resolving]
  - Pain in extremity [Recovering/Resolving]
  - Gait disturbance [Recovering/Resolving]
